FAERS Safety Report 7832981-8 (Version None)
Quarter: 2011Q4

REPORT INFORMATION
  Report Type: 
  Country: None (occurrence: None)
  Receive Date: 20111024
  Receipt Date: 20111011
  Transmission Date: 20120403
  Serious: Yes (Other)
  Sender: FDA-Public Use
  Company Number: US-JNJFOC-20111004982

PATIENT
  Sex: Female

DRUGS (2)
  1. HEPARIN SULFATE [Suspect]
     Indication: FLUSHING
     Route: 065
  2. REMICADE [Suspect]
     Indication: PRODUCT USED FOR UNKNOWN INDICATION
     Route: 042
     Dates: start: 20030101

REACTIONS (5)
  - DEAFNESS [None]
  - KIDNEY ENLARGEMENT [None]
  - ORGAN FAILURE [None]
  - MYOCARDIAL INFARCTION [None]
  - VARIANT CREUTZFELDT-JAKOB DISEASE [None]
